FAERS Safety Report 24968565 (Version 1)
Quarter: 2025Q1

REPORT INFORMATION
  Report Type: Spontaneous
  Country: CN (occurrence: CN)
  Receive Date: 20250214
  Receipt Date: 20250214
  Transmission Date: 20250408
  Serious: Yes (Hospitalization, Other)
  Sender: GILEAD
  Company Number: CN-GILEAD-2025-0703381

PATIENT
  Age: 42 Year
  Sex: Female
  Weight: 45 kg

DRUGS (3)
  1. TRODELVY [Suspect]
     Active Substance: SACITUZUMAB GOVITECAN-HZIY
     Indication: Breast cancer
     Dosage: 680 MG, QD
     Route: 041
     Dates: start: 20250117, end: 20250117
  2. TRODELVY [Suspect]
     Active Substance: SACITUZUMAB GOVITECAN-HZIY
     Route: 042
     Dates: start: 20250117, end: 20250117
  3. IVONESCIMAB [Concomitant]
     Active Substance: IVONESCIMAB
     Indication: Breast cancer
     Dosage: 300 MG, QD
     Route: 041
     Dates: start: 20250117, end: 20250117

REACTIONS (1)
  - Myelosuppression [Not Recovered/Not Resolved]

NARRATIVE: CASE EVENT DATE: 20250126
